FAERS Safety Report 6388440-5 (Version None)
Quarter: 2009Q4

REPORT INFORMATION
  Report Type: 
  Country: None (occurrence: None)
  Receive Date: 20091001
  Receipt Date: 20091001
  Transmission Date: 20100525
  Serious: No
  Sender: FDA-Public Use
  Company Number: None

PATIENT
  Age: 37 Year
  Sex: Male
  Weight: 27.2158 kg

DRUGS (1)
  1. CHANTIX [Suspect]
     Indication: SMOKING CESSATION THERAPY
     Dosage: PO
     Route: 048
     Dates: start: 20080201, end: 20080302

REACTIONS (9)
  - ABNORMAL BEHAVIOUR [None]
  - COGNITIVE DISORDER [None]
  - FEELING ABNORMAL [None]
  - FIBROMYALGIA [None]
  - MYALGIA [None]
  - PAIN [None]
  - PERSONALITY CHANGE [None]
  - SOFT TISSUE DISORDER [None]
  - TEMPERATURE INTOLERANCE [None]
